FAERS Safety Report 8418653-X (Version None)
Quarter: 2012Q2

REPORT INFORMATION
  Report Type: 
  Country: None (occurrence: None)
  Receive Date: 20120607
  Receipt Date: 20120529
  Transmission Date: 20120825
  Serious: Yes (Hospitalization)
  Sender: FDA-Public Use
  Company Number: JP-ELI_LILLY_AND_COMPANY-JP201205009936

PATIENT
  Age: 53 Year
  Sex: Female
  Weight: 53 kg

DRUGS (10)
  1. TULOBUTEROL [Concomitant]
     Dosage: UNK
     Route: 062
  2. ACTONEL [Concomitant]
     Dosage: 17.5 MG, WEEKLY (1/W)
     Route: 048
  3. NEO-MERCAZOLE TAB [Concomitant]
     Dosage: UNK
     Route: 048
  4. OXYGEN [Concomitant]
     Dosage: UNK
     Route: 055
  5. TADALAFIL [Suspect]
     Dosage: 10 MG, QD
     Route: 048
     Dates: start: 20120424, end: 20120518
  6. PREDNISOLONE [Concomitant]
     Dosage: UNK
     Route: 048
  7. TADALAFIL [Suspect]
     Indication: PORTOPULMONARY HYPERTENSION
     Dosage: 20 MG, QD
     Route: 048
     Dates: start: 20120201, end: 20120423
  8. URSO 250 [Concomitant]
     Dosage: UNK
     Route: 048
  9. LASIX [Concomitant]
     Dosage: UNK
     Route: 048
  10. RABEPRAZOLE SODIUM [Concomitant]
     Dosage: UNK
     Route: 048

REACTIONS (1)
  - HEPATIC FUNCTION ABNORMAL [None]
